FAERS Safety Report 23245305 (Version 1)
Quarter: 2023Q4

REPORT INFORMATION
  Report Type: Report from Study
  Country: US (occurrence: US)
  Receive Date: 20231130
  Receipt Date: 20231130
  Transmission Date: 20240110
  Serious: Yes (Hospitalization)
  Sender: FDA-Public Use
  Company Number: US-GILEAD-2023-0652270

PATIENT
  Age: 84 Year
  Sex: Male

DRUGS (2)
  1. SACITUZUMAB GOVITECAN-HZIY [Suspect]
     Active Substance: SACITUZUMAB GOVITECAN-HZIY
     Indication: Transitional cell carcinoma
     Dosage: 6 MG/KG,  D1, 8 Q3W
     Route: 042
     Dates: start: 20230223
  2. ENFORTUMAB VEDOTIN [Suspect]
     Active Substance: ENFORTUMAB VEDOTIN
     Indication: Transitional cell carcinoma
     Dosage: 1 MG/KG, D1, 8 Q3W
     Route: 042
     Dates: start: 20230223

REACTIONS (3)
  - Impaired work ability [Unknown]
  - Sinus rhythm [Unknown]
  - Asthenia [Unknown]

NARRATIVE: CASE EVENT DATE: 20231120
